FAERS Safety Report 24132909 (Version 1)
Quarter: 2024Q3

REPORT INFORMATION
  Report Type: Spontaneous
  Country: FI (occurrence: FI)
  Receive Date: 20240724
  Receipt Date: 20240724
  Transmission Date: 20241017
  Serious: Yes (Hospitalization)
  Sender: FRESENIUS KABI
  Company Number: None

PATIENT
  Age: 54 Year
  Sex: Female

DRUGS (5)
  1. PACLITAXEL [Suspect]
     Active Substance: PACLITAXEL
     Indication: Invasive ductal breast carcinoma
     Dosage: 145 MG (4TH INFUSION)?FORM OF ADMIN.- CONCENTRATE FOR SOLUTION FOR INFUSION
     Route: 042
     Dates: start: 20231024, end: 20231024
  2. PACLITAXEL [Suspect]
     Active Substance: PACLITAXEL
     Dosage: 145 MG?FORM OF ADMIN.- CONCENTRATE FOR SOLUTION FOR INFUSION
     Route: 042
     Dates: start: 20230926, end: 20240130
  3. TARGINIQ ER [Concomitant]
     Active Substance: NALOXONE HYDROCHLORIDE\OXYCODONE HYDROCHLORIDE
     Indication: Cancer pain
     Dosage: 1 TABLET X 2?FORM OF ADMIN.- PROLONGED-RELEASE TABLET
     Route: 048
     Dates: start: 20230926
  4. POLYETHYLENE GLYCOL 4000 [Concomitant]
     Active Substance: POLYETHYLENE GLYCOL 4000
     Indication: Constipation
     Dosage: 12 G X 1?FORM OF ADMIN. - POWDER ORAL SOLUTION IN SINGLE-DOSE CONTAINER
     Route: 048
     Dates: start: 20231002
  5. PANTOPRAZOLE SODIUM [Concomitant]
     Active Substance: PANTOPRAZOLE SODIUM
     Indication: Prophylaxis against gastrointestinal ulcer
     Dosage: 40 MG X 1?FORM OF ADMIN.- GASTRO-RESISTANT TABLET
     Route: 048
     Dates: start: 20221227

REACTIONS (4)
  - Erythema [Recovered/Resolved]
  - Dyspnoea [Recovered/Resolved]
  - Infusion related reaction [Recovered/Resolved]
  - Chest discomfort [Recovered/Resolved]

NARRATIVE: CASE EVENT DATE: 20231024
